FAERS Safety Report 18247771 (Version 2)
Quarter: 2020Q3

REPORT INFORMATION
  Report Type: Spontaneous
  Country: US (occurrence: US)
  Receive Date: 20200909
  Receipt Date: 20200914
  Transmission Date: 20201103
  Serious: No
  Sender: FDA-Public Use
  Company Number: US-009507513-2009USA002768

PATIENT
  Age: 26 Year
  Sex: Female
  Weight: 83.99 kg

DRUGS (1)
  1. NEXPLANON [Suspect]
     Active Substance: ETONOGESTREL
     Dosage: 1 ROD, EVERY THREE YEARS
     Route: 059
     Dates: start: 20200731, end: 20200806

REACTIONS (4)
  - Paraesthesia [Unknown]
  - Pain in extremity [Unknown]
  - Hypoaesthesia [Unknown]
  - Device placement issue [Recovered/Resolved]

NARRATIVE: CASE EVENT DATE: 2020
